FAERS Safety Report 5575381-6 (Version None)
Quarter: 2007Q4

REPORT INFORMATION
  Report Type: 
  Country: None (occurrence: None)
  Receive Date: 20071227
  Receipt Date: 20071221
  Transmission Date: 20080405
  Serious: Yes (Other)
  Sender: FDA-Public Use
  Company Number: PHEH2007US13375

PATIENT
  Age: 80 Year
  Sex: Female

DRUGS (3)
  1. EXJADE [Suspect]
     Indication: BLOOD IRON INCREASED
     Dosage: UNK, QD
     Route: 048
  2. GABAPENTIN [Concomitant]
     Dosage: 300 MG, BID
     Route: 048
  3. DECITABINE [Concomitant]
     Indication: MYELODYSPLASTIC SYNDROME

REACTIONS (12)
  - ALANINE AMINOTRANSFERASE INCREASED [None]
  - ASTHENIA [None]
  - BILIARY DILATATION [None]
  - BLOOD BILIRUBIN INCREASED [None]
  - BLOOD CALCIUM DECREASED [None]
  - BLOOD CREATININE INCREASED [None]
  - BLOOD UREA INCREASED [None]
  - CONFUSIONAL STATE [None]
  - HAEMOGLOBIN DECREASED [None]
  - HEPATIC FAILURE [None]
  - JAUNDICE [None]
  - RENAL FAILURE ACUTE [None]
